FAERS Safety Report 9213577 (Version 3)
Quarter: 2013Q2

REPORT INFORMATION
  Report Type: Spontaneous
  Country: ZA (occurrence: ZA)
  Receive Date: 20130405
  Receipt Date: 20130529
  Transmission Date: 20140414
  Serious: Yes (Hospitalization, Other)
  Sender: FDA-Public Use
  Company Number: ZA-NOVOPROD-371141

PATIENT
  Age: 29 Year
  Sex: Female

DRUGS (4)
  1. NOVORAPID FLEXPEN [Suspect]
     Indication: GESTATIONAL DIABETES
     Dosage: 8 IU, TID
     Route: 058
     Dates: start: 20130112, end: 20130307
  2. LEVEMIR FLEXPEN [Suspect]
     Indication: GESTATIONAL DIABETES
     Dosage: 20 IU, QD
     Route: 058
     Dates: start: 20130112, end: 20130307
  3. HYPOTEN                            /00353802/ [Concomitant]
  4. OMEGA PLUS 3 6 9 [Concomitant]

REACTIONS (2)
  - Premature delivery [Recovered/Resolved]
  - Exposure during pregnancy [Unknown]
